FAERS Safety Report 9311075 (Version 1)
Quarter: 2013Q2

REPORT INFORMATION
  Report Type: Spontaneous
  Country: US (occurrence: None)
  Receive Date: 20130523
  Receipt Date: 20130523
  Transmission Date: 20140414
  Serious: Yes (Other)
  Sender: FDA-Public Use
  Company Number: None

PATIENT
  Age: 4 Year
  Sex: Male

DRUGS (1)
  1. GENOTROPIN [Suspect]
     Dosage: SUBQ HS 6 DAYS, 6 DAYS PER WEEK
     Route: 058
     Dates: start: 20120227, end: 20130522

REACTIONS (4)
  - Fluid retention [None]
  - Skin discolouration [None]
  - Pain in extremity [None]
  - Fatigue [None]
